FAERS Safety Report 15807387 (Version 1)
Quarter: 2019Q1

REPORT INFORMATION
  Report Type: Report from Study
  Country: IT (occurrence: IT)
  Receive Date: 20190110
  Receipt Date: 20190110
  Transmission Date: 20190417
  Serious: Yes (Other)
  Sender: FDA-Public Use
  Company Number: IT-MYLANLABS-2019M1001596

PATIENT
  Age: 35 Year
  Sex: Male

DRUGS (4)
  1. CYCLOPHOSPHAMIDE. [Interacting]
     Active Substance: CYCLOPHOSPHAMIDE
     Indication: NEUROENDOCRINE CARCINOMA
     Dosage: ON DAY 1
     Route: 042
  2. FLUOROURACIL. [Suspect]
     Active Substance: FLUOROURACIL
     Indication: NEUROENDOCRINE CARCINOMA
     Dosage: ON DAY 1
     Route: 040
  3. INTERLEUKIN-2 [Interacting]
     Active Substance: ALDESLEUKIN
     Indication: NEUROENDOCRINE CARCINOMA
     Dosage: 18 MUI/M 2 ON DAYS 4-6 AND DAYS 18-20; FOLLOWED BY 18 MUI/M 2 ON DAYS 4-6 AND DAYS 18-20
     Route: 041
  4. INTERLEUKIN-2 [Interacting]
     Active Substance: ALDESLEUKIN
     Dosage: 18 MUI/M 2 ON DAYS 4-6 AND DAYS 18-20
     Route: 041

REACTIONS (7)
  - Anaemia [Recovered/Resolved]
  - Capillary leak syndrome [Unknown]
  - Off label use [Recovering/Resolving]
  - Hypotension [Recovered/Resolved]
  - Hypothyroidism [Not Recovered/Not Resolved]
  - Pyrexia [Recovered/Resolved]
  - Pruritus [Recovered/Resolved]
